FAERS Safety Report 24240202 (Version 2)
Quarter: 2024Q3

REPORT INFORMATION
  Report Type: Spontaneous
  Country: JP (occurrence: JP)
  Receive Date: 20240822
  Receipt Date: 20240828
  Transmission Date: 20241016
  Serious: Yes (Death, Other)
  Sender: EISAI
  Company Number: JP-Eisai-202406224_LEN-HCC_P_1

PATIENT
  Age: 76 Year
  Sex: Male

DRUGS (1)
  1. LENVIMA [Suspect]
     Active Substance: LENVATINIB
     Indication: Hepatocellular carcinoma
     Dosage: DOSE AND FREQUENCY UNKNOWN
     Route: 048

REACTIONS (3)
  - Death [Fatal]
  - Disseminated intravascular coagulation [Unknown]
  - Infection [Unknown]
